FAERS Safety Report 21205773 (Version 2)
Quarter: 2022Q3

REPORT INFORMATION
  Report Type: Spontaneous
  Country: US (occurrence: US)
  Receive Date: 20220812
  Receipt Date: 20220909
  Transmission Date: 20221027
  Serious: No
  Sender: FDA-Public Use
  Company Number: US-LUPIN PHARMACEUTICALS INC.-2022-10143

PATIENT
  Age: 21 Year
  Sex: Female

DRUGS (22)
  1. HYDROXYCHLOROQUINE [Suspect]
     Active Substance: HYDROXYCHLOROQUINE
     Indication: Lupus nephritis
     Dosage: 200 MILLIGRAM, QD
     Route: 065
  2. SOLU-MEDROL [Suspect]
     Active Substance: METHYLPREDNISOLONE SODIUM SUCCINATE
     Indication: Lupus nephritis
     Dosage: 1 GRAM, QD
     Route: 042
  3. BETAMETHASONE [Suspect]
     Active Substance: BETAMETHASONE
     Indication: Maternal therapy to enhance foetal lung maturity
     Dosage: 12 MILLIGRAM, BID (2 DOSES; 24 H APART)
     Route: 030
  4. ACETAMINOPHEN [Suspect]
     Active Substance: ACETAMINOPHEN
     Indication: Pleuritic pain
     Dosage: UNK
     Route: 065
  5. ASPIRIN [Suspect]
     Active Substance: ASPIRIN
     Indication: Pre-eclampsia
     Dosage: 81 MILLIGRAM, QD
     Route: 065
  6. PREDNISONE [Suspect]
     Active Substance: PREDNISONE
     Indication: Evidence based treatment
     Dosage: 20 MILLIGRAM, QD
     Route: 065
  7. PREDNISONE [Suspect]
     Active Substance: PREDNISONE
     Indication: Lupus nephritis
     Dosage: 80 MILLIGRAM, QD (BASED ON 1 MG/KG RECOMMAENDATIONS FROM RHEUMATOLOG)
     Route: 065
  8. PREDNISONE [Suspect]
     Active Substance: PREDNISONE
     Indication: Pericarditis
     Dosage: 60 MILLIGRAM, QD
     Route: 065
  9. PREDNISONE [Suspect]
     Active Substance: PREDNISONE
     Indication: Pleural effusion
     Dosage: 80 MILLIGRAM, QD (WITH PLANS TO TAPER BY 5 MG PER WEEK)
     Route: 065
  10. PREDNISONE [Suspect]
     Active Substance: PREDNISONE
     Dosage: 75 MILLIGRAM, QD (WITH TAPER OF 5 MG PER WEEK)
     Route: 065
  11. HALOPERIDOL [Suspect]
     Active Substance: HALOPERIDOL
     Indication: Intensive care unit delirium
     Dosage: 1 MILLIGRAM, QD
     Route: 048
  12. DIGOXIN [Suspect]
     Active Substance: DIGOXIN
     Indication: Atrial fibrillation
     Dosage: 500 MICROGRAM
     Route: 042
  13. DIGOXIN [Suspect]
     Active Substance: DIGOXIN
     Dosage: 250 MICROGRAM
     Route: 042
  14. FUROSEMIDE [Suspect]
     Active Substance: FUROSEMIDE
     Indication: Lupus nephritis
     Dosage: 20 MILLIGRAM, QD
     Route: 042
  15. FUROSEMIDE [Suspect]
     Active Substance: FUROSEMIDE
     Indication: Pericarditis
     Dosage: 40 MILLIGRAM, QD
     Route: 042
  16. LABETALOL [Suspect]
     Active Substance: LABETALOL\LABETALOL HYDROCHLORIDE
     Indication: Hypertension
     Dosage: 20 MILLIGRAM, SINGLE
     Route: 042
  17. LABETALOL [Suspect]
     Active Substance: LABETALOL\LABETALOL HYDROCHLORIDE
     Dosage: 200 MILLIGRAM, BID
     Route: 048
  18. LABETALOL [Suspect]
     Active Substance: LABETALOL\LABETALOL HYDROCHLORIDE
     Dosage: 600 MILLIGRAM, BID
     Route: 065
  19. HYDROMORPHONE [Suspect]
     Active Substance: HYDROMORPHONE
     Indication: Arthralgia
     Dosage: 0.4 MG
     Route: 042
  20. COLCHICINE [Suspect]
     Active Substance: COLCHICINE
     Indication: Pericarditis
     Dosage: 0.6 MILLIGRAM, QD
     Route: 065
  21. COLCHICINE [Suspect]
     Active Substance: COLCHICINE
     Dosage: 0.6 MILLIGRAM, BID
     Route: 065
  22. AZATHIOPRINE [Suspect]
     Active Substance: AZATHIOPRINE
     Indication: Lupus nephritis
     Dosage: 150 MILLIGRAM, QD (2 MG/KG)
     Route: 065

REACTIONS (2)
  - Maternal exposure during breast feeding [Unknown]
  - Maternal exposure during pregnancy [Unknown]
